FAERS Safety Report 24105835 (Version 1)
Quarter: 2024Q3

REPORT INFORMATION
  Report Type: Spontaneous
  Country: US (occurrence: None)
  Receive Date: 20240716
  Receipt Date: 20240716
  Transmission Date: 20241017
  Serious: Yes (Other)
  Sender: Public
  Company Number: None

PATIENT
  Age: 73 Year
  Sex: Male
  Weight: 92.25 kg

DRUGS (13)
  1. SCOPOLAMINE TRANSDERMAL SYSTEM [Suspect]
     Active Substance: SCOPOLAMINE
     Indication: Parkinson^s disease
     Dosage: OTHER QUANTITY : 1 PATCH(ES);?OTHER FREQUENCY : 72 HOURS;?
     Route: 062
     Dates: start: 20240702, end: 20240716
  2. SCOPOLAMINE TRANSDERMAL SYSTEM [Suspect]
     Active Substance: SCOPOLAMINE
     Indication: Salivary hypersecretion
  3. SCOPOLAMINE TRANSDERMAL SYSTEM [Suspect]
     Active Substance: SCOPOLAMINE
     Indication: Drug ineffective
  4. Pacemaker [Concomitant]
  5. Carbidopal/Levodopa [Concomitant]
  6. OLMESARTAN [Concomitant]
     Active Substance: OLMESARTAN
  7. medoximil [Concomitant]
  8. WARFARIN [Concomitant]
  9. METOPROLOL [Concomitant]
  10. SIMVASTATIN [Concomitant]
  11. Qunol CoQ10 [Concomitant]
  12. Vitacost Probotic [Concomitant]
  13. Centum Silver Men 50+ [Concomitant]

REACTIONS (4)
  - Accidental overdose [None]
  - Confusional state [None]
  - Hallucination, visual [None]
  - Circumstance or information capable of leading to medication error [None]

NARRATIVE: CASE EVENT DATE: 20240702
